FAERS Safety Report 5326202-8 (Version None)
Quarter: 2007Q2

REPORT INFORMATION
  Report Type: 
  Country: None (occurrence: None)
  Receive Date: 20070510
  Receipt Date: 20070507
  Transmission Date: 20071010
  Serious: Yes (Hospitalization)
  Sender: FDA-Public Use
  Company Number: ZYD-AE-07-030

PATIENT
  Age: 49 Year
  Sex: Female

DRUGS (2)
  1. RIBAVIRIN [Suspect]
     Dosage: 200 MG 5 CAPS PO DAILY
     Route: 048
     Dates: start: 20070112, end: 20070216
  2. PEGASYS [Suspect]
     Dosage: 180 MCG PER WEEK
     Dates: start: 20070112, end: 20070216

REACTIONS (6)
  - BLOOD TRIGLYCERIDES INCREASED [None]
  - GALLBLADDER DISORDER [None]
  - GASTRIC ULCER [None]
  - HEART RATE INCREASED [None]
  - LABORATORY TEST ABNORMAL [None]
  - PANCREATITIS [None]
